FAERS Safety Report 9461527 (Version 1)
Quarter: 2013Q3

REPORT INFORMATION
  Report Type: Other
  Country: AU (occurrence: AU)
  Receive Date: 20130816
  Receipt Date: 20130816
  Transmission Date: 20140515
  Serious: Yes (Death, Other)
  Sender: FDA-Public Use
  Company Number: AU-BRISTOL-MYERS SQUIBB COMPANY-19192871

PATIENT
  Age: 26 Year
  Sex: Female

DRUGS (3)
  1. CETUXIMAB [Suspect]
     Indication: SQUAMOUS CELL CARCINOMA OF SKIN
     Dosage: 2ND DOSE:300MG
  2. GEMCITABINE [Suspect]
  3. MINOCYCLINE [Concomitant]
     Indication: PREMEDICATION

REACTIONS (4)
  - Pneumonia [Fatal]
  - Metastases to lung [Unknown]
  - Dry skin [Unknown]
  - Off label use [Unknown]
